FAERS Safety Report 10790494 (Version 2)
Quarter: 2015Q1

REPORT INFORMATION
  Report Type: Report from Study
  Country: US (occurrence: US)
  Receive Date: 20150212
  Receipt Date: 20150318
  Transmission Date: 20150721
  Serious: No
  Sender: FDA-Public Use
  Company Number: US-GILEAD-2015-0136640

PATIENT
  Age: 72 Year
  Sex: Female

DRUGS (1)
  1. AMBRISENTAN [Suspect]
     Active Substance: AMBRISENTAN
     Indication: PRODUCT USED FOR UNKNOWN INDICATION
     Dosage: 5 MG, QD
     Route: 065
     Dates: start: 20150128, end: 20150203

REACTIONS (10)
  - Rash [Unknown]
  - Pain [Unknown]
  - Pruritus [Unknown]
  - Dizziness [Unknown]
  - Influenza like illness [Unknown]
  - Pyrexia [Unknown]
  - Peripheral swelling [Unknown]
  - Malaise [Unknown]
  - Swelling face [Unknown]
  - Swelling [Unknown]

NARRATIVE: CASE EVENT DATE: 20150130
